FAERS Safety Report 21325498 (Version 2)
Quarter: 2023Q4

REPORT INFORMATION
  Report Type: Report from Study
  Country: NL (occurrence: NL)
  Receive Date: 20220912
  Receipt Date: 20231227
  Transmission Date: 20240109
  Serious: Yes (Death)
  Sender: FDA-Public Use
  Company Number: NL-MYLANLABS-2022M1092301

PATIENT
  Age: 83 Year
  Sex: Female

DRUGS (1)
  1. CREON [Suspect]
     Active Substance: PANCRELIPASE AMYLASE\PANCRELIPASE LIPASE\PANCRELIPASE PROTEASE
     Indication: Pancreatic carcinoma
     Dosage: UNK (25000)
     Route: 048
     Dates: start: 20210224

REACTIONS (1)
  - Death [Fatal]

NARRATIVE: CASE EVENT DATE: 20220907
